FAERS Safety Report 8545653-1 (Version None)
Quarter: 2012Q3

REPORT INFORMATION
  Report Type: 
  Country: None (occurrence: None)
  Receive Date: 20120727
  Receipt Date: 20120720
  Transmission Date: 20120928
  Serious: Yes (Disabling, Other)
  Sender: FDA-Public Use
  Company Number: CA-PFIZER INC-2012079096

PATIENT
  Age: 65 Year
  Sex: Female
  Weight: 70.295 kg

DRUGS (5)
  1. METFORMIN [Concomitant]
     Indication: TYPE 2 DIABETES MELLITUS
     Dosage: 500 MG, 1X/DAY
     Dates: start: 20100101
  2. LIPITOR [Suspect]
     Indication: BLOOD CHOLESTEROL INCREASED
     Dosage: 10 MG, 1X/DAY
     Dates: end: 20120101
  3. RATIO-ATORVASTATIN [Suspect]
     Indication: BLOOD CHOLESTEROL
     Dosage: 10 MG, 1X/DAY
     Dates: end: 20120101
  4. ESCITALOPRAM [Concomitant]
     Indication: DEPRESSION
     Dosage: 10 MG, 1X/DAY
     Dates: start: 20110901
  5. SYNTHROID [Concomitant]
     Indication: THYROID DISORDER
     Dosage: 0.05 UNK, 1X/DAY
     Dates: start: 20020101

REACTIONS (10)
  - MYOPATHY [None]
  - BLOOD CREATINE PHOSPHOKINASE INCREASED [None]
  - ALANINE AMINOTRANSFERASE INCREASED [None]
  - FATIGUE [None]
  - ASPARTATE AMINOTRANSFERASE INCREASED [None]
  - HEAD INJURY [None]
  - FALL [None]
  - COORDINATION ABNORMAL [None]
  - DYSPHAGIA [None]
  - BLOOD LACTATE DEHYDROGENASE INCREASED [None]
